FAERS Safety Report 9526345 (Version 1)
Quarter: 2013Q1

REPORT INFORMATION
  Report Type: Spontaneous
  Country: US (occurrence: None)
  Receive Date: 20130305
  Receipt Date: 20130305
  Transmission Date: 20140127
  Serious: Yes (Hospitalization)
  Sender: FDA-Public Use
  Company Number: 163-21880-12030885

PATIENT
  Age: 69 Year
  Sex: Male

DRUGS (5)
  1. REVLIMID (LENALIDOMIDE) (CAPSULES) [Suspect]
     Indication: PLASMA CELL MYELOMA
     Dosage: 25 MG, X 21 CAPS, PO
     Route: 048
     Dates: start: 20110630, end: 201203
  2. CENTRUM (CENTRUM) (UNKNOWN) [Concomitant]
  3. ZANTAC (RANITIDINE HYDROCHLORIDE) (UNKNOWN) [Concomitant]
  4. DURAGESIC (FENTANYL) (UNKNOWN) [Concomitant]
  5. PERCOCET (OXYCOCET) (UNKNOWN) [Concomitant]

REACTIONS (3)
  - White blood cell count decreased [None]
  - Infection [None]
  - Hypertension [None]
